FAERS Safety Report 25300827 (Version 1)
Quarter: 2025Q2

REPORT INFORMATION
  Report Type: Spontaneous
  Country: AT (occurrence: AT)
  Receive Date: 20250512
  Receipt Date: 20250512
  Transmission Date: 20250717
  Serious: Yes (Other)
  Sender: ABBVIE
  Company Number: AT-ABBVIE-6273161

PATIENT
  Age: 40 Year
  Sex: Male

DRUGS (5)
  1. HUMIRA [Suspect]
     Active Substance: ADALIMUMAB
     Indication: Inflammatory bowel disease
     Route: 058
     Dates: start: 201005, end: 201008
  2. INFLIXIMAB [Concomitant]
     Active Substance: INFLIXIMAB
     Indication: Product used for unknown indication
     Dates: start: 201107, end: 201701
  3. ENTYVIO [Concomitant]
     Active Substance: VEDOLIZUMAB
     Indication: Product used for unknown indication
     Dates: start: 201803, end: 201810
  4. STELARA [Concomitant]
     Active Substance: USTEKINUMAB
     Indication: Product used for unknown indication
     Dates: start: 201811
  5. STELARA [Concomitant]
     Active Substance: USTEKINUMAB
     Indication: Product used for unknown indication
     Dates: start: 202010

REACTIONS (11)
  - Nephritis [Unknown]
  - Granuloma [Unknown]
  - C-reactive protein increased [Unknown]
  - Leukocytosis [Unknown]
  - Crohn^s disease [Unknown]
  - Anaemia [Unknown]
  - Inflammatory bowel disease [Unknown]
  - Erythema [Unknown]
  - Faecal calprotectin increased [Unknown]
  - Mucosal ulceration [Unknown]
  - Mucosal haemorrhage [Unknown]

NARRATIVE: CASE EVENT DATE: 20230601
